FAERS Safety Report 24657751 (Version 2)
Quarter: 2024Q4

REPORT INFORMATION
  Report Type: Spontaneous
  Country: MX (occurrence: MX)
  Receive Date: 20241125
  Receipt Date: 20241126
  Transmission Date: 20250115
  Serious: Yes (Death)
  Sender: SANDOZ
  Company Number: MX-002147023-NVSC2024MX223961

PATIENT
  Sex: Male
  Weight: 70 kg

DRUGS (1)
  1. EXELON [Suspect]
     Active Substance: RIVASTIGMINE TARTRATE
     Indication: Parkinson^s disease
     Dosage: 1 DF (18 MG), EVERY 72 HOURS/ EVERY THIRD  DAY
     Route: 062
     Dates: start: 2018, end: 2020

REACTIONS (2)
  - COVID-19 [Fatal]
  - Wrong technique in product usage process [Unknown]

NARRATIVE: CASE EVENT DATE: 20180101
